FAERS Safety Report 9858031 (Version 1)
Quarter: 2014Q1

REPORT INFORMATION
  Report Type: Spontaneous
  Country: HN (occurrence: HN)
  Receive Date: 20140131
  Receipt Date: 20140131
  Transmission Date: 20141002
  Serious: Yes (Other)
  Sender: FDA-Public Use
  Company Number: HN-ASTRAZENECA-2014SE05805

PATIENT
  Age: 65 Year
  Sex: Female
  Weight: 90.7 kg

DRUGS (5)
  1. NEXIUM [Suspect]
     Indication: GASTRITIS
     Route: 048
  2. NIFEDIPINE [Concomitant]
     Indication: HYPERTENSION
     Route: 048
     Dates: start: 20130123
  3. METFORMIN [Concomitant]
     Indication: DIABETES MELLITUS
     Route: 048
     Dates: start: 20030123
  4. AERO-OM [Concomitant]
     Indication: FLATULENCE
     Route: 048
  5. AERO-OM [Concomitant]
     Indication: FLATULENCE
     Dosage: PRN
     Route: 048

REACTIONS (1)
  - Chest discomfort [Recovered/Resolved]
